FAERS Safety Report 13916542 (Version 1)
Quarter: 2017Q3

REPORT INFORMATION
  Report Type: Spontaneous
  Country: JP (occurrence: JP)
  Receive Date: 20170829
  Receipt Date: 20170829
  Transmission Date: 20171127
  Serious: Yes (Other)
  Sender: FDA-Public Use
  Company Number: JP-JNJFOC-20170821335

PATIENT
  Age: 42 Year
  Sex: Male
  Weight: 83 kg

DRUGS (2)
  1. METGLUCO [Concomitant]
     Active Substance: METFORMIN HYDROCHLORIDE
     Indication: TYPE 2 DIABETES MELLITUS
     Route: 048
     Dates: start: 20150616, end: 20161122
  2. CANAGLU [Suspect]
     Active Substance: CANAGLIFLOZIN
     Indication: TYPE 2 DIABETES MELLITUS
     Route: 048
     Dates: start: 20160621, end: 20161122

REACTIONS (2)
  - Urine ketone body present [Unknown]
  - Balanoposthitis [Recovered/Resolved]

NARRATIVE: CASE EVENT DATE: 201611
